FAERS Safety Report 8477171-3 (Version None)
Quarter: 2012Q2

REPORT INFORMATION
  Report Type: 
  Country: None (occurrence: None)
  Receive Date: 20120625
  Receipt Date: 20120625
  Transmission Date: 20120825
  Serious: Yes (Other)
  Sender: FDA-Public Use
  Company Number: None

PATIENT
  Age: 18 Year
  Sex: Female
  Weight: 102.0593 kg

DRUGS (2)
  1. CLINDAMYCIN [Suspect]
     Indication: TOOTH INFECTION
     Dosage: 2 CAPS NOW 1 EVERY 6 HRS 6 HOURS PO
     Route: 048
     Dates: start: 20120611, end: 20120615
  2. CLINDAMYCIN [Suspect]
     Indication: GINGIVAL INFECTION
     Dosage: 2 CAPS NOW 1 EVERY 6 HRS 6 HOURS PO
     Route: 048
     Dates: start: 20120611, end: 20120615

REACTIONS (5)
  - NAUSEA [None]
  - FATIGUE [None]
  - ABDOMINAL PAIN UPPER [None]
  - DIARRHOEA [None]
  - POLLAKIURIA [None]
